FAERS Safety Report 15280200 (Version 1)
Quarter: 2018Q3

REPORT INFORMATION
  Report Type: Spontaneous
  Country: US (occurrence: US)
  Receive Date: 20180815
  Receipt Date: 20180815
  Transmission Date: 20181010
  Serious: Yes (Other)
  Sender: FDA-Public Use
  Company Number: US-CONCORDIA PHARMACEUTICALS INC.-GSH201808-002935

PATIENT
  Sex: Male

DRUGS (7)
  1. XTANDI [Suspect]
     Active Substance: ENZALUTAMIDE
  2. CASODEX [Suspect]
     Active Substance: BICALUTAMIDE
     Indication: PROSTATE CANCER
     Route: 048
  3. LUPRON [Suspect]
     Active Substance: LEUPROLIDE ACETATE
  4. TAXOTERE [Suspect]
     Active Substance: DOCETAXEL
  5. NILANDRON [Suspect]
     Active Substance: NILUTAMIDE
  6. ZYTIGA [Suspect]
     Active Substance: ABIRATERONE ACETATE
  7. PROVENGE [Suspect]
     Active Substance: SIPULEUCEL-T

REACTIONS (3)
  - Disease progression [Unknown]
  - Spinal cord compression [Unknown]
  - Metastases to spinal cord [Unknown]
